FAERS Safety Report 24167812 (Version 3)
Quarter: 2024Q4

REPORT INFORMATION
  Report Type: Spontaneous
  Country: PL (occurrence: PL)
  Receive Date: 20240802
  Receipt Date: 20241029
  Transmission Date: 20250115
  Serious: Yes (Hospitalization)
  Sender: UCB
  Company Number: PL-UCBSA-2024038550

PATIENT
  Age: 29 Year
  Sex: Female
  Weight: 73 kg

DRUGS (1)
  1. BIMZELX [Suspect]
     Active Substance: BIMEKIZUMAB-BKZX
     Indication: Psoriasis
     Dosage: 320 MILLIGRAM, EV 4 WEEKS
     Route: 058
     Dates: start: 20240430

REACTIONS (3)
  - Dermatitis atopic [Recovering/Resolving]
  - Alopecia [Recovering/Resolving]
  - Fungal infection [Unknown]

NARRATIVE: CASE EVENT DATE: 20240625
